FAERS Safety Report 4589505-0 (Version None)
Quarter: 2005Q1

REPORT INFORMATION
  Report Type: 
  Country: None (occurrence: None)
  Receive Date: 20050216
  Receipt Date: 20041129
  Transmission Date: 20050727
  Serious: Yes (Other)
  Sender: FDA-Public Use
  Company Number: 2004234790DE

PATIENT
  Age: 56 Year
  Sex: Female

DRUGS (1)
  1. BEXTRA [Suspect]
     Indication: OSTEOARTHRITIS
     Dosage: 20 MG (AS NECESSARY), ORAL
     Route: 048
     Dates: start: 20040901, end: 20040921

REACTIONS (3)
  - STEVENS-JOHNSON SYNDROME [None]
  - STREPTOCOCCAL INFECTION [None]
  - TOXIC EPIDERMAL NECROLYSIS [None]
